FAERS Safety Report 20966064 (Version 2)
Quarter: 2022Q2

REPORT INFORMATION
  Report Type: Report from Study
  Country: CH (occurrence: CH)
  Receive Date: 20220616
  Receipt Date: 20220620
  Transmission Date: 20220721
  Serious: Yes (Other)
  Sender: FDA-Public Use
  Company Number: CH-ABBVIE-22K-151-4432096-00

PATIENT
  Age: 77 Year
  Sex: Male

DRUGS (2)
  1. CARBIDOPA\LEVODOPA [Suspect]
     Active Substance: CARBIDOPA\LEVODOPA
     Indication: Parkinson^s disease
     Dosage: MD: 3 ML, CRD: 2.8 ML/H, CRN: 0 ML/H, ED: 0.5 ML?16H THERAPY
     Route: 050
     Dates: start: 20220610, end: 202206
  2. CARBIDOPA\LEVODOPA [Suspect]
     Active Substance: CARBIDOPA\LEVODOPA
     Dosage: MD: 6.0 ML, CRD: 2.8 ML/H, CRN: 0 ML/H, ED: 1.0 ML
     Route: 050
     Dates: start: 202206

REACTIONS (5)
  - Device breakage [Recovering/Resolving]
  - Blood pressure decreased [Unknown]
  - Device occlusion [Unknown]
  - Device occlusion [Recovered/Resolved]
  - Freezing phenomenon [Not Recovered/Not Resolved]

NARRATIVE: CASE EVENT DATE: 20220601
